FAERS Safety Report 4602051-0 (Version None)
Quarter: 2005Q1

REPORT INFORMATION
  Report Type: 
  Country: None (occurrence: None)
  Receive Date: 20050131
  Receipt Date: 20041209
  Transmission Date: 20050727
  Serious: Yes (Death)
  Sender: FDA-Public Use
  Company Number: 04P-163-0282812-00

PATIENT
  Sex: Male
  Weight: 84.369 kg

DRUGS (1)
  1. SYNTHROID [Suspect]
     Dosage: 175 MCG, 1 IN 1 D, ORAL
     Route: 048
     Dates: end: 20041207

REACTIONS (1)
  - DEATH [None]
